FAERS Safety Report 6431143-9 (Version None)
Quarter: 2009Q4

REPORT INFORMATION
  Report Type: 
  Country: None (occurrence: None)
  Receive Date: 20091103
  Receipt Date: 20091019
  Transmission Date: 20100525
  Serious: No
  Sender: FDA-Public Use
  Company Number: 001275

PATIENT
  Age: 61 Year
  Sex: Male
  Weight: 69 kg

DRUGS (6)
  1. PLETAL [Suspect]
     Indication: CEREBRAL INFARCTION
     Dosage: 100 MG, BID, ORAL
     Route: 048
     Dates: start: 20050804, end: 20050830
  2. PLETAL [Suspect]
     Dosage: ORAL
     Dates: start: 20050831, end: 20080522
  3. PLETAL [Suspect]
     Dosage: ORAL
     Route: 048
     Dates: start: 20080531, end: 20080602
  4. COMELIAN (DILAZEP HYDROCHLORIDE) TABLET [Concomitant]
  5. BLOPRESS (CANDESARTAN CILEXETIL) TABLET [Concomitant]
  6. ADALAT-CR (NIFEDIPINE) TABLET [Concomitant]

REACTIONS (1)
  - LYMPHOMA [None]
